FAERS Safety Report 6223523-1 (Version None)
Quarter: 2009Q2

REPORT INFORMATION
  Report Type: 
  Country: None (occurrence: None)
  Receive Date: 20090610
  Receipt Date: 20090526
  Transmission Date: 20091009
  Serious: Yes (Hospitalization, Disabling)
  Sender: FDA-Public Use
  Company Number: 2008-187773-NL

PATIENT
  Age: 46 Year
  Sex: Female
  Weight: 66.7 kg

DRUGS (3)
  1. NUVARING [Suspect]
     Indication: MENSTRUAL CYCLE MANAGEMENT
     Dates: start: 20050616, end: 20051226
  2. IMITREX ^CERENEX^ [Concomitant]
  3. TOPAMAX [Concomitant]

REACTIONS (11)
  - ANTIPHOSPHOLIPID ANTIBODIES POSITIVE [None]
  - ARTHRALGIA [None]
  - BRADYCARDIA [None]
  - BRAIN HERNIATION [None]
  - CAROTID ARTERY OCCLUSION [None]
  - CEREBROVASCULAR ACCIDENT [None]
  - INTRACRANIAL PRESSURE INCREASED [None]
  - MITRAL VALVE INCOMPETENCE [None]
  - NECK PAIN [None]
  - PULMONARY VALVE INCOMPETENCE [None]
  - TIBIA FRACTURE [None]
